FAERS Safety Report 5991110-6 (Version None)
Quarter: 2008Q4

REPORT INFORMATION
  Report Type: 
  Country: None (occurrence: None)
  Receive Date: 20081211
  Receipt Date: 20081203
  Transmission Date: 20090506
  Serious: Yes (Other)
  Sender: FDA-Public Use
  Company Number: JP-JNJFOC-20081101407

PATIENT
  Age: 61 Year
  Sex: Male
  Weight: 64.3 kg

DRUGS (16)
  1. FINIBAX [Suspect]
     Indication: DRUG USE FOR UNKNOWN INDICATION
     Route: 041
  2. MEROPEN [Suspect]
     Indication: DRUG USE FOR UNKNOWN INDICATION
     Route: 042
  3. VANCOMYCIN HYDROCHLORIDE [Suspect]
     Indication: DRUG USE FOR UNKNOWN INDICATION
     Route: 042
  4. AMBISOME [Suspect]
     Indication: FUNGAL INFECTION
     Route: 042
  5. AMBISOME [Suspect]
     Indication: FEBRILE NEUTROPENIA
     Route: 042
  6. CYCLOCIDE [Suspect]
     Indication: DRUG USE FOR UNKNOWN INDICATION
     Route: 065
  7. DAUNOMYCIN [Suspect]
     Indication: DRUG USE FOR UNKNOWN INDICATION
     Route: 065
  8. FUNGUARD [Concomitant]
  9. CONCENTRATED HUMAN RED BLOOD CELLS [Concomitant]
  10. CONCENTRATED HUMAN RED BLOOD CELLS [Concomitant]
  11. CONCENTRATED HUMAN BLOOD PLATELET [Concomitant]
  12. CONCENTRATED HUMAN BLOOD PLATELET [Concomitant]
  13. GLOVENIN-I [Concomitant]
  14. FAMOTIDINE [Concomitant]
  15. GRAN [Concomitant]
  16. INOVAN [Concomitant]

REACTIONS (1)
  - BLOOD CREATININE INCREASED [None]
